FAERS Safety Report 23669980 (Version 1)
Quarter: 2024Q1

REPORT INFORMATION
  Report Type: Spontaneous
  Country: IT (occurrence: IT)
  Receive Date: 20240325
  Receipt Date: 20240325
  Transmission Date: 20240410
  Serious: Yes (Other)
  Sender: FDA-Public Use
  Company Number: IT-AMERICAN REGENT INC-20190475

PATIENT
  Age: 49 Year
  Sex: Female

DRUGS (2)
  1. FERINJECT [Suspect]
     Active Substance: FERRIC CARBOXYMALTOSE
     Indication: Iron deficiency anaemia
     Dosage: UNK, SINGLE
     Route: 042
     Dates: start: 201806, end: 201806
  2. FERINJECT [Suspect]
     Active Substance: FERRIC CARBOXYMALTOSE
     Dosage: 10 ML,1 IN 1 TOTAL
     Route: 042
     Dates: start: 20180725, end: 20180725

REACTIONS (5)
  - Psychomotor hyperactivity [Recovered/Resolved]
  - Incontinence [Recovered/Resolved]
  - Muscle spasms [Recovered/Resolved]
  - Malaise [Recovered/Resolved]
  - Abdominal pain [Recovered/Resolved]

NARRATIVE: CASE EVENT DATE: 20180725
